FAERS Safety Report 21070928 (Version 1)
Quarter: 2022Q3

REPORT INFORMATION
  Report Type: Spontaneous
  Country: US (occurrence: US)
  Receive Date: 20220712
  Receipt Date: 20220712
  Transmission Date: 20221027
  Serious: No
  Sender: FDA-Public Use
  Company Number: US-ELI_LILLY_AND_COMPANY-US202207003254

PATIENT
  Age: 73 Year
  Sex: Male

DRUGS (5)
  1. HUMALOG KWIKPEN [Suspect]
     Active Substance: INSULIN LISPRO
     Indication: Type 2 diabetes mellitus
     Dosage: 16 U, OTHER, DEPEND ON GLUCOSE LEVEL, 16 UNITS IF GLUCOSE LEVEL BETWEEN 150-200
     Route: 058
     Dates: start: 2020
  2. HUMALOG KWIKPEN [Suspect]
     Active Substance: INSULIN LISPRO
     Indication: Type 2 diabetes mellitus
     Dosage: 16 U, OTHER, DEPEND ON GLUCOSE LEVEL, 16 UNITS IF GLUCOSE LEVEL BETWEEN 150-200
     Route: 058
     Dates: start: 2020
  3. HUMALOG KWIKPEN [Suspect]
     Active Substance: INSULIN LISPRO
     Dosage: 16 U, OTHER, DEPEND ON GLUCOSE LEVEL, 16 UNITS IF GLUCOSE LEVEL BETWEEN 150-200
     Route: 058
     Dates: start: 2020
  4. HUMALOG KWIKPEN [Suspect]
     Active Substance: INSULIN LISPRO
     Dosage: 16 U, OTHER, DEPEND ON GLUCOSE LEVEL, 16 UNITS IF GLUCOSE LEVEL BETWEEN 150-200
     Route: 058
     Dates: start: 2020
  5. TRESIBA [Concomitant]
     Active Substance: INSULIN DEGLUDEC
     Indication: Product used for unknown indication

REACTIONS (3)
  - Blood glucose increased [Unknown]
  - Drug ineffective [Unknown]
  - Product storage error [Unknown]

NARRATIVE: CASE EVENT DATE: 20220628
